FAERS Safety Report 6822564-0 (Version None)
Quarter: 2010Q3

REPORT INFORMATION
  Report Type: 
  Country: None (occurrence: None)
  Receive Date: 20100708
  Receipt Date: 20100630
  Transmission Date: 20110219
  Serious: Yes (Hospitalization)
  Sender: FDA-Public Use
  Company Number: BR-SANOFI-AVENTIS-2010SA038499

PATIENT
  Age: 65 Year
  Sex: Male

DRUGS (5)
  1. ARAVA [Suspect]
     Indication: RHEUMATOID ARTHRITIS
     Dates: start: 20060101, end: 20060101
  2. NSAID'S [Concomitant]
     Dates: start: 20040101
  3. METHOTREXATE [Concomitant]
     Dates: start: 20040101
  4. CORTICOSTEROIDS [Concomitant]
     Dates: start: 20040101
  5. RANITIDINE [Concomitant]
     Dates: start: 20040101

REACTIONS (4)
  - DIARRHOEA [None]
  - PLEURAL EFFUSION [None]
  - RESPIRATORY FAILURE [None]
  - RHEUMATOID NODULE [None]
